FAERS Safety Report 5976116-5 (Version None)
Quarter: 2008Q4

REPORT INFORMATION
  Report Type: 
  Country: None (occurrence: None)
  Receive Date: 20081202
  Receipt Date: 20080623
  Transmission Date: 20090506
  Serious: Yes (Other)
  Sender: FDA-Public Use
  Company Number: US-AMGEN-QUU277740

PATIENT
  Sex: Female

DRUGS (1)
  1. ENBREL [Suspect]
     Indication: RHEUMATOID ARTHRITIS
     Route: 058
     Dates: start: 20080410

REACTIONS (10)
  - AGITATION [None]
  - ALOPECIA [None]
  - ANAL HAEMORRHAGE [None]
  - ARTHRALGIA [None]
  - DEPRESSION [None]
  - DIARRHOEA [None]
  - EYELID OEDEMA [None]
  - IRRITABILITY [None]
  - MELAENA [None]
  - SEASONAL ALLERGY [None]
